FAERS Safety Report 20669998 (Version 9)
Quarter: 2022Q3

REPORT INFORMATION
  Report Type: Report from Study
  Country: US (occurrence: US)
  Receive Date: 20220404
  Receipt Date: 20220812
  Transmission Date: 20221027
  Serious: No
  Sender: FDA-Public Use
  Company Number: US-NOVARTISTESTPH-NVSC2022US075806

PATIENT
  Sex: Female

DRUGS (1)
  1. ENTRESTO [Suspect]
     Active Substance: SACUBITRIL\VALSARTAN
     Indication: Product used for unknown indication
     Dosage: 1 DOSAGE FORM, BID (24/26 MG)
     Route: 048

REACTIONS (22)
  - Dyspnoea [Unknown]
  - Depression [Unknown]
  - Gait inability [Unknown]
  - Peripheral swelling [Unknown]
  - Gastrooesophageal reflux disease [Unknown]
  - Decreased appetite [Unknown]
  - Rales [Unknown]
  - Abdominal discomfort [Unknown]
  - Nervousness [Unknown]
  - Blood sodium increased [Unknown]
  - Lacrimation increased [Unknown]
  - Hypoaesthesia [Unknown]
  - Eye pruritus [Unknown]
  - Seasonal allergy [Unknown]
  - Sciatica [Unknown]
  - Weight fluctuation [Unknown]
  - Fluid retention [Unknown]
  - Productive cough [Unknown]
  - Heart rate increased [Recovering/Resolving]
  - Nausea [Recovered/Resolved]
  - Cough [Recovering/Resolving]
  - Dizziness [Recovering/Resolving]
